FAERS Safety Report 5912061-9 (Version None)
Quarter: 2008Q4

REPORT INFORMATION
  Report Type: 
  Country: None (occurrence: None)
  Receive Date: 20081008
  Receipt Date: 20081003
  Transmission Date: 20090506
  Serious: Yes (Death, Hospitalization, Other)
  Sender: FDA-Public Use
  Company Number: US-ELI_LILLY_AND_COMPANY-US200810001200

PATIENT
  Age: 66 Year
  Sex: Female

DRUGS (3)
  1. HUMULIN R [Suspect]
  2. HUMULIN N [Suspect]
  3. GLUCAGON [Suspect]

REACTIONS (3)
  - DEATH [None]
  - HOSPITALISATION [None]
  - NEOPLASM MALIGNANT [None]
